FAERS Safety Report 10370905 (Version 1)
Quarter: 2014Q3

REPORT INFORMATION
  Report Type: Spontaneous
  Country: US (occurrence: US)
  Receive Date: 20140808
  Receipt Date: 20140808
  Transmission Date: 20150326
  Serious: Yes (Death, Other)
  Sender: FDA-Public Use
  Company Number: US-ASTRAZENECA-2014SE56816

PATIENT
  Age: 54 Year
  Sex: Male

DRUGS (2)
  1. BRILINTA [Suspect]
     Active Substance: TICAGRELOR
     Indication: MYOCARDIAL INFARCTION
     Route: 048
     Dates: end: 201406
  2. BRILINTA [Suspect]
     Active Substance: TICAGRELOR
     Indication: MYOCARDIAL INFARCTION
     Route: 048
     Dates: start: 20140618

REACTIONS (4)
  - Thrombosis in device [Unknown]
  - Myocardial infarction [Fatal]
  - Drug dose omission [Unknown]
  - Rash [Unknown]

NARRATIVE: CASE EVENT DATE: 201406
